FAERS Safety Report 17488807 (Version 1)
Quarter: 2020Q1

REPORT INFORMATION
  Report Type: Spontaneous
  Country: US (occurrence: US)
  Receive Date: 20200221
  Receipt Date: 20200221
  Transmission Date: 20200409
  Serious: Yes (Hospitalization)
  Sender: FDA-Public Use
  Company Number: None

PATIENT
  Age: 30 Year
  Sex: Female

DRUGS (2)
  1. TOBRAMYCIN  300MG/5ML [Suspect]
     Active Substance: TOBRAMYCIN
     Route: 055
     Dates: start: 20180525
  2. TRIKAFTA [Suspect]
     Active Substance: ELEXACAFTOR\IVACAFTOR\TEZACAFTOR
     Indication: CYSTIC FIBROSIS
     Route: 048
     Dates: start: 20191211

REACTIONS (5)
  - Nausea [None]
  - Vomiting [None]
  - Back pain [None]
  - Product dose omission [None]
  - Decreased appetite [None]

NARRATIVE: CASE EVENT DATE: 202002
